FAERS Safety Report 8545172-2 (Version None)
Quarter: 2012Q3

REPORT INFORMATION
  Report Type: 
  Country: None (occurrence: None)
  Receive Date: 20120727
  Receipt Date: 20120718
  Transmission Date: 20120928
  Serious: Yes (Death, Life-Threatening, Other)
  Sender: FDA-Public Use
  Company Number: JP-ROCHE-730467

PATIENT
  Sex: Female
  Weight: 69.2 kg

DRUGS (22)
  1. INFLIXIMAB [Suspect]
     Indication: RHEUMATOID ARTHRITIS
     Route: 041
     Dates: start: 20070919, end: 20080731
  2. NORVASC [Concomitant]
     Route: 048
     Dates: start: 20090801, end: 20090929
  3. DEXAMETHASONE [Concomitant]
     Dosage: DRUG REPORTED: LIMETHASON
     Route: 041
     Dates: start: 20101116, end: 20101116
  4. PREDNISOLONE [Concomitant]
     Route: 048
     Dates: start: 20101103, end: 20101122
  5. FOLIC ACID [Concomitant]
     Route: 048
     Dates: start: 20100731, end: 20100901
  6. METHOTREXATE SODIUM [Suspect]
     Dosage: DIVIDED INTO 2 DOSES.
     Route: 048
     Dates: start: 20090211, end: 20100901
  7. ACTEMRA [Suspect]
     Indication: RHEUMATOID ARTHRITIS
     Dosage: DOSAGE IS UNCERTAIN
     Route: 041
     Dates: start: 20080826, end: 20080826
  8. PREDNISOLONE [Concomitant]
     Route: 048
     Dates: start: 20090902, end: 20101102
  9. NORVASC [Concomitant]
     Route: 048
  10. PROTECADIN [Concomitant]
     Route: 048
  11. FOLIC ACID [Concomitant]
     Route: 048
  12. METHOTREXATE SODIUM [Suspect]
     Route: 048
     Dates: start: 20090114, end: 20090210
  13. PREDNISOLONE [Concomitant]
     Route: 048
     Dates: start: 20090211, end: 20090310
  14. PREDNISOLONE [Concomitant]
     Route: 048
     Dates: start: 20090311, end: 20090731
  15. PREDNISOLONE [Concomitant]
     Route: 048
  16. PREDNISOLONE [Concomitant]
     Route: 048
     Dates: start: 20090801, end: 20090901
  17. ALENDRONATE SODIUM [Concomitant]
     Route: 048
  18. AMLODIPINE [Concomitant]
     Route: 048
     Dates: start: 20090930, end: 20100901
  19. METHOTREXATE SODIUM [Suspect]
     Indication: RHEUMATOID ARTHRITIS
     Dosage: DIVIDED INTO 2 DOSES
     Route: 048
  20. RIMATIL [Concomitant]
     Route: 048
  21. PREDNISOLONE [Concomitant]
     Route: 048
     Dates: start: 20090114, end: 20090210
  22. VOLTAREN [Concomitant]
     Route: 061

REACTIONS (5)
  - HYPERLIPIDAEMIA [None]
  - RENAL CELL CARCINOMA [None]
  - DEATH [None]
  - HEPATIC FUNCTION ABNORMAL [None]
  - JOINT EFFUSION [None]
